FAERS Safety Report 19967253 (Version 2)
Quarter: 2021Q4

REPORT INFORMATION
  Report Type: Spontaneous
  Country: BR (occurrence: BR)
  Receive Date: 20211019
  Receipt Date: 20211028
  Transmission Date: 20220303
  Serious: Yes (Other)
  Sender: FDA-Public Use
  Company Number: BR-SA-2020SA065227

PATIENT
  Age: 25 Year
  Sex: Male
  Weight: 45 kg

DRUGS (2)
  1. FABRAZYME [Suspect]
     Active Substance: AGALSIDASE BETA
     Indication: Fabry^s disease
     Dosage: 2 DF, Q15D
     Route: 041
     Dates: start: 20190501, end: 20200227
  2. FABRAZYME [Suspect]
     Active Substance: AGALSIDASE BETA
     Dosage: 2 DF, Q15D
     Route: 041
     Dates: start: 20200227

REACTIONS (13)
  - Thrombosis [Unknown]
  - Feeling abnormal [Recovered/Resolved]
  - Peripheral swelling [Unknown]
  - Vein disorder [Unknown]
  - Haemodialysis [Unknown]
  - Abdominal discomfort [Recovered/Resolved]
  - Hypersensitivity [Recovered/Resolved]
  - Ocular discomfort [Recovered/Resolved]
  - Vomiting [Recovered/Resolved]
  - Nausea [Recovered/Resolved]
  - Pain [Unknown]
  - Oedema peripheral [Unknown]
  - Inappropriate schedule of product administration [Unknown]

NARRATIVE: CASE EVENT DATE: 20200227
